FAERS Safety Report 24144405 (Version 3)
Quarter: 2025Q3

REPORT INFORMATION
  Report Type: Spontaneous
  Country: US (occurrence: US)
  Receive Date: 20240728
  Receipt Date: 20250810
  Transmission Date: 20251020
  Serious: No
  Sender: ALEXION PHARMACEUTICALS
  Company Number: 2024A168098

PATIENT

DRUGS (2)
  1. TEZSPIRE [Suspect]
     Active Substance: TEZEPELUMAB-EKKO
  2. TEZSPIRE [Suspect]
     Active Substance: TEZEPELUMAB-EKKO

REACTIONS (2)
  - Dysphonia [Unknown]
  - Device leakage [Unknown]
